FAERS Safety Report 11971666 (Version 1)
Quarter: 2016Q1

REPORT INFORMATION
  Report Type: Spontaneous
  Country: US (occurrence: US)
  Receive Date: 20160128
  Receipt Date: 20160128
  Transmission Date: 20160526
  Serious: Yes (Death)
  Sender: FDA-Public Use
  Company Number: US-LPDUSPRD-20160065

PATIENT

DRUGS (1)
  1. OLANZAPINE FOR INJECTION (0517-0955-01) [Suspect]
     Active Substance: OLANZAPINE
     Dosage: DOSE NOT STATED
     Route: 065

REACTIONS (1)
  - Death [Fatal]
